FAERS Safety Report 5432138-4 (Version None)
Quarter: 2007Q3

REPORT INFORMATION
  Report Type: 
  Country: None (occurrence: None)
  Receive Date: 20070830
  Receipt Date: 20070820
  Transmission Date: 20080115
  Serious: Yes (Hospitalization, Other)
  Sender: FDA-Public Use
  Company Number: US-PFIZER INC-2007030761

PATIENT
  Sex: Male
  Weight: 120.2 kg

DRUGS (2)
  1. BEXTRA [Suspect]
  2. CELEBREX [Suspect]

REACTIONS (5)
  - CEREBROVASCULAR ACCIDENT [None]
  - MYOCARDIAL INFARCTION [None]
  - ORGAN FAILURE [None]
  - STEVENS-JOHNSON SYNDROME [None]
  - THROMBOSIS [None]
